FAERS Safety Report 9760176 (Version 1)
Quarter: 2013Q4

REPORT INFORMATION
  Report Type: Spontaneous
  Country: US (occurrence: None)
  Receive Date: 20131212
  Receipt Date: 20131212
  Transmission Date: 20140711
  Serious: Yes (Other)
  Sender: FDA-Public Use
  Company Number: AUR-APL-2013-10464

PATIENT
  Age: 84 Year
  Sex: Female
  Weight: 73.02 kg

DRUGS (5)
  1. LOSARTAN [Suspect]
     Indication: HYPERTENSION
     Route: 048
     Dates: start: 20131001
  2. CLOPIDOGREL ( CLOPIDOGREL) [Concomitant]
  3. LEVOTHYROXINE ( LEVOTHYROXINE) [Concomitant]
  4. CELEBREX ( CELECOXIB) [Concomitant]
  5. DOC-Q-LACE ( DOCUSATE SODIUM) [Concomitant]

REACTIONS (3)
  - Constipation [None]
  - Blood pressure increased [None]
  - Drug ineffective [None]
